FAERS Safety Report 5723861-2 (Version None)
Quarter: 2008Q2

REPORT INFORMATION
  Report Type: 
  Country: None (occurrence: None)
  Receive Date: 20080429
  Receipt Date: 20080429
  Transmission Date: 20081010
  Serious: Yes (Other)
  Sender: FDA-Public Use
  Company Number: None

PATIENT
  Sex: Male

DRUGS (5)
  1. REVLIMID [Suspect]
     Indication: CHRONIC LYMPHOCYTIC LEUKAEMIA
     Dosage: 25MG DAILY X21D/28D PO
     Route: 048
     Dates: start: 20070917, end: 20080101
  2. REVLIMID [Suspect]
  3. REVLIMID [Suspect]
     Indication: CHRONIC LYMPHOCYTIC LEUKAEMIA
     Dosage: 15MG DAILY X21D/28D PO
     Route: 048
     Dates: start: 20071228, end: 20080131
  4. ALLOPURINOL [Concomitant]
  5. NAPROXEN PRN [Concomitant]

REACTIONS (4)
  - CHRONIC LYMPHOCYTIC LEUKAEMIA [None]
  - MALIGNANT NEOPLASM PROGRESSION [None]
  - PROLYMPHOCYTIC LEUKAEMIA [None]
  - THROMBOCYTOPENIA [None]
